FAERS Safety Report 25367273 (Version 1)
Quarter: 2025Q2

REPORT INFORMATION
  Report Type: Spontaneous
  Country: DE (occurrence: DE)
  Receive Date: 20250528
  Receipt Date: 20250528
  Transmission Date: 20250716
  Serious: Yes (Other)
  Sender: RANBAXY
  Company Number: DE-CADRBFARM-2025334571

PATIENT
  Age: 69 Year
  Sex: Female
  Weight: 73 kg

DRUGS (1)
  1. ALENDRONIC ACID [Suspect]
     Active Substance: ALENDRONIC ACID
     Indication: Osteoporosis
     Dosage: 70 MILLIGRAM, 1/WEEK 1 TIMES A WEEK (FASTING AND UPRIGHT), PLANNED INTAKE UNTIL 2025/12
     Route: 048
     Dates: start: 202307

REACTIONS (3)
  - Oesophageal carcinoma [Recovering/Resolving]
  - Abdominal discomfort [Unknown]
  - Barrett^s oesophagus [Recovering/Resolving]

NARRATIVE: CASE EVENT DATE: 20240101
